FAERS Safety Report 7734975-X (Version None)
Quarter: 2011Q3

REPORT INFORMATION
  Report Type: 
  Country: None (occurrence: None)
  Receive Date: 20110907
  Receipt Date: 20110825
  Transmission Date: 20111222
  Serious: Yes (Hospitalization, Other)
  Sender: FDA-Public Use
  Company Number: PHHY2011FR76281

PATIENT
  Sex: Male
  Weight: 90 kg

DRUGS (13)
  1. SINTROM [Suspect]
     Dosage: UNK
     Dates: start: 20110601, end: 20110803
  2. LEVOTHYROXINE SODIUM [Concomitant]
  3. ARANESP [Concomitant]
     Dosage: UNK
     Dates: start: 20110501, end: 20110801
  4. FUNGIZONE [Concomitant]
  5. COUMADIN [Concomitant]
  6. ALLOPURINOL [Suspect]
     Dosage: 100 MG, DAILY
     Route: 048
     Dates: start: 20110720, end: 20110730
  7. FUROSEMIDE [Concomitant]
  8. CLINDAMYCIN [Concomitant]
  9. PREVISCAN [Concomitant]
     Dosage: UNK
     Dates: end: 20110601
  10. HYDROCORTISONE [Concomitant]
     Dosage: 30 MG, DAILY
     Dates: start: 20110804
  11. EPREX [Concomitant]
     Dosage: UNK
     Dates: start: 20101001, end: 20110510
  12. KAYEXALATE [Concomitant]
  13. BISOPROLOL FUMARATE [Concomitant]

REACTIONS (9)
  - RENAL FAILURE [None]
  - HYPONATRAEMIA [None]
  - PRURITUS [None]
  - VOMITING [None]
  - EOSINOPHILIA [None]
  - NAUSEA [None]
  - ASTHENIA [None]
  - CARDIAC FAILURE [None]
  - DRUG RASH WITH EOSINOPHILIA AND SYSTEMIC SYMPTOMS [None]
